FAERS Safety Report 6258049-2 (Version None)
Quarter: 2009Q3

REPORT INFORMATION
  Report Type: 
  Country: None (occurrence: None)
  Receive Date: 20090707
  Receipt Date: 20090629
  Transmission Date: 20100115
  Serious: Yes (Hospitalization)
  Sender: FDA-Public Use
  Company Number: BR-ASTRAZENECA-2009UW18331

PATIENT
  Age: 73 Year
  Sex: Male

DRUGS (2)
  1. ATENOL [Suspect]
     Route: 048
     Dates: start: 20020101
  2. GLUCOFORMIN [Concomitant]
     Route: 048
     Dates: start: 20000101

REACTIONS (3)
  - CARTILAGE ATROPHY [None]
  - HERPES VIRUS INFECTION [None]
  - IN-STENT ARTERIAL RESTENOSIS [None]
